FAERS Safety Report 23230939 (Version 1)
Quarter: 2023Q4

REPORT INFORMATION
  Report Type: Report from Study
  Country: TH (occurrence: None)
  Receive Date: 20231127
  Receipt Date: 20231127
  Transmission Date: 20240110
  Serious: Yes (Other)
  Sender: FDA-Public Use
  Company Number: 2021A808277

PATIENT
  Age: 61 Year
  Sex: Female

DRUGS (2)
  1. TAGRISSO [Suspect]
     Active Substance: OSIMERTINIB
     Indication: Non-small cell lung cancer metastatic
     Route: 048
     Dates: start: 20200412
  2. COVID-19 VACCINE [Concomitant]
     Route: 065

REACTIONS (16)
  - Syncope [Unknown]
  - Arrhythmia [Unknown]
  - Wound [Recovering/Resolving]
  - Inflammation [Recovering/Resolving]
  - Pain [Recovering/Resolving]
  - Anaemia [Unknown]
  - Enteritis [Not Recovered/Not Resolved]
  - Illness [Not Recovered/Not Resolved]
  - COVID-19 [Recovered/Resolved]
  - Dizziness [Recovered/Resolved]
  - Influenza [Recovered/Resolved]
  - Rash macular [Recovering/Resolving]
  - Rash [Recovered/Resolved]
  - Dry skin [Recovered/Resolved]
  - Rash pruritic [Unknown]
  - Product dose omission issue [Unknown]

NARRATIVE: CASE EVENT DATE: 20210101
